FAERS Safety Report 4717222-2 (Version None)
Quarter: 2005Q3

REPORT INFORMATION
  Report Type: 
  Country: None (occurrence: None)
  Receive Date: 20050715
  Receipt Date: 20050707
  Transmission Date: 20060218
  Serious: Yes (Life-Threatening, Hospitalization)
  Sender: FDA-Public Use
  Company Number: 2005-06-0594

PATIENT
  Age: 60 Year
  Sex: Male

DRUGS (2)
  1. PEG-INTRON [Suspect]
     Indication: HEPATITIS C
     Dosage: 100 MCG QW SUBCUTANEOUS
     Route: 058
     Dates: start: 20041224, end: 20050601
  2. REBETOL [Suspect]
     Indication: HEPATITIS C
     Dosage: 600 MG ORAL
     Route: 048
     Dates: start: 20041224, end: 20050601

REACTIONS (7)
  - ARTERIOSCLEROSIS [None]
  - ATRIAL FIBRILLATION [None]
  - CAROTID ARTERY DISEASE [None]
  - CEREBRAL INFARCTION [None]
  - DILATATION ATRIAL [None]
  - HEPATIC STEATOSIS [None]
  - THROMBOSIS [None]
